FAERS Safety Report 4889618-X (Version None)
Quarter: 2006Q1

REPORT INFORMATION
  Report Type: 
  Country: None (occurrence: None)
  Receive Date: 20060124
  Receipt Date: 20060119
  Transmission Date: 20060701
  Serious: Yes (Other)
  Sender: FDA-Public Use
  Company Number: CA-GLAXOSMITHKLINE-A0590156A

PATIENT
  Age: 52 Year
  Sex: Female
  Weight: 98 kg

DRUGS (7)
  1. FONDAPARINUX SODIUM [Suspect]
     Indication: MYOCARDIAL INFARCTION
     Dosage: 2.5MG PER DAY
     Route: 058
     Dates: start: 20041117, end: 20041122
  2. ASPIRIN [Concomitant]
  3. PLAVIX [Concomitant]
  4. METOPROLOL [Concomitant]
     Dosage: 50MG TWICE PER DAY
  5. ALTACE [Concomitant]
  6. PAXIL [Concomitant]
  7. NITROGLYCERIN [Concomitant]

REACTIONS (1)
  - CATHETER RELATED COMPLICATION [None]
